FAERS Safety Report 21415518 (Version 2)
Quarter: 2022Q4

REPORT INFORMATION
  Report Type: Spontaneous
  Country: RS (occurrence: RS)
  Receive Date: 20221006
  Receipt Date: 20221018
  Transmission Date: 20230112
  Serious: Yes (Other)
  Sender: FDA-Public Use
  Company Number: RS-009507513-2210SRB000424

PATIENT
  Age: 37 Year
  Sex: Female

DRUGS (2)
  1. PREVYMIS [Suspect]
     Active Substance: LETERMOVIR
     Indication: Antiviral prophylaxis
     Dosage: 1 DOSAGE FORM, QD, STRENGTH: 240 MG
     Route: 048
  2. CYCLOSPORINE [Suspect]
     Active Substance: CYCLOSPORINE
     Indication: Antiviral prophylaxis
     Dosage: UNK

REACTIONS (1)
  - Cytomegalovirus infection reactivation [Unknown]
